FAERS Safety Report 8835967 (Version 2)
Quarter: 2012Q4

REPORT INFORMATION
  Report Type: Report from Study
  Country: US (occurrence: US)
  Receive Date: 20121011
  Receipt Date: 20121029
  Transmission Date: 20130627
  Serious: No
  Sender: FDA-Public Use
  Company Number: US-NOVOPROD-361257

PATIENT
  Age: 51 Year
  Sex: Male
  Weight: 117.7 kg

DRUGS (2)
  1. LIRAGLUTIDE FLEXPEN [Suspect]
     Indication: SLEEP APNOEA SYNDROME
     Dosage: 2.4 mg, qd
     Route: 058
     Dates: start: 20120918
  2. LIRAGLUTIDE FLEXPEN [Suspect]
     Indication: OBESITY
     Dosage: 0.6 mg, qd
     Route: 058
     Dates: start: 20120828

REACTIONS (1)
  - Lipase increased [Recovered/Resolved]
